FAERS Safety Report 11105762 (Version 1)
Quarter: 2015Q2

REPORT INFORMATION
  Report Type: Spontaneous
  Country: US (occurrence: None)
  Receive Date: 20150508
  Receipt Date: 20150508
  Transmission Date: 20150821
  Serious: Yes (Hospitalization, Other)
  Sender: FDA-Public Use
  Company Number: US-ZYDUS-007946

PATIENT
  Age: 75 Year
  Sex: Female

DRUGS (3)
  1. NPH INSULIN [Suspect]
     Active Substance: INSULIN BEEF
     Indication: DIABETES MELLITUS
     Route: 058
  2. PIOGLITAZONE (PIOGLITAZONE) [Suspect]
     Active Substance: PIOGLITAZONE
     Indication: DIABETES MELLITUS
     Route: 048
  3. INSULIN LISPRO(INSULIN LISPRO) [Suspect]
     Active Substance: INSULIN LISPRO
     Indication: DIABETES MELLITUS
     Route: 058

REACTIONS (5)
  - Hypoglycaemia [None]
  - Ventricular extrasystoles [None]
  - Electrocardiogram QT prolonged [None]
  - Disorientation [None]
  - Delirium [None]
